FAERS Safety Report 4674610-0 (Version None)
Quarter: 2005Q2

REPORT INFORMATION
  Report Type: 
  Country: None (occurrence: None)
  Receive Date: 20050526
  Receipt Date: 20050516
  Transmission Date: 20051028
  Serious: Yes (Other)
  Sender: FDA-Public Use
  Company Number: US-GLAXOSMITHKLINE-A0558725A

PATIENT
  Age: 89 Year
  Sex: Female
  Weight: 56.4 kg

DRUGS (14)
  1. OS-CAL ULTRA 600 PLUS [Suspect]
     Indication: MINERAL SUPPLEMENTATION
     Route: 048
     Dates: end: 20050401
  2. COUMADIN [Concomitant]
  3. DIGITEK [Concomitant]
  4. LISINOPRIL [Concomitant]
  5. SINGULAIR [Concomitant]
  6. ADVAIR DISKUS 100/50 [Concomitant]
  7. SPIRIVA [Concomitant]
  8. NEBULIZER [Concomitant]
  9. OXYGEN [Concomitant]
  10. VESICARE [Concomitant]
  11. MUCINEX [Concomitant]
  12. MULTIVITAMIN [Concomitant]
  13. GLUCOSAMINE CHONDROITIN [Concomitant]
  14. LASIX [Concomitant]

REACTIONS (1)
  - CHOKING [None]
